FAERS Safety Report 4553862-1 (Version None)
Quarter: 2005Q1

REPORT INFORMATION
  Report Type: 
  Country: None (occurrence: None)
  Receive Date: 20050112
  Receipt Date: 20050112
  Transmission Date: 20050727
  Serious: No
  Sender: FDA-Public Use
  Company Number: None

PATIENT
  Age: 8 Year
  Sex: Male

DRUGS (2)
  1. PANCREATIC ENZYMES [Suspect]
     Indication: CYSTIC FIBROSIS
  2. PANCREATIC ENZYMES [Suspect]
     Indication: PANCREATIC INSUFFICIENCY

REACTIONS (5)
  - ABDOMINAL DISTENSION [None]
  - DIARRHOEA [None]
  - DRUG INEFFECTIVE [None]
  - PHARMACEUTICAL PRODUCT COMPLAINT [None]
  - WEIGHT GAIN POOR [None]
